FAERS Safety Report 6260612-X (Version None)
Quarter: 2009Q3

REPORT INFORMATION
  Report Type: 
  Country: None (occurrence: None)
  Receive Date: 20090706
  Receipt Date: 20090618
  Transmission Date: 20100115
  Serious: Yes (Other)
  Sender: FDA-Public Use
  Company Number: 09-000985

PATIENT
  Age: 58 Year
  Sex: Male

DRUGS (3)
  1. DOVONEX [Suspect]
     Indication: PSORIASIS
     Dosage: 2 DF, TOPICAL
     Route: 061
     Dates: start: 20081224, end: 20090415
  2. SULFASALAZINE [Suspect]
     Indication: PSORIATIC ARTHROPATHY
     Dosage: 2000 MG DAILY (500 MG QID), ORAL; 1500 MG (500 MG TID), ORAL; 1000 MG (500 MG BID), ORAL
     Route: 048
     Dates: start: 20090101, end: 20090423
  3. SULFASALAZINE [Suspect]
     Indication: PSORIATIC ARTHROPATHY
     Dosage: 2000 MG DAILY (500 MG QID), ORAL; 1500 MG (500 MG TID), ORAL; 1000 MG (500 MG BID), ORAL
     Route: 048
     Dates: start: 20081224

REACTIONS (7)
  - BLOOD GLUCOSE INCREASED [None]
  - BLOOD IMMUNOGLOBULIN A INCREASED [None]
  - GLOMERULONEPHRITIS [None]
  - GLYCOSURIA [None]
  - HYPERTENSION [None]
  - PROTEINURIA [None]
  - RENAL TUBULAR DISORDER [None]
